FAERS Safety Report 5977054-4 (Version None)
Quarter: 2008Q4

REPORT INFORMATION
  Report Type: 
  Country: None (occurrence: None)
  Receive Date: 20081202
  Receipt Date: 20081202
  Transmission Date: 20090506
  Serious: Yes (Hospitalization)
  Sender: FDA-Public Use
  Company Number: None

PATIENT
  Sex: Female
  Weight: 68.9 kg

DRUGS (11)
  1. ESTRADIOL [Suspect]
     Indication: BREAST CANCER METASTATIC
     Dosage: 2.0 MG THREE TIMES DAILY PO
     Route: 048
     Dates: start: 20080207, end: 20081201
  2. EFFEXOR XR [Concomitant]
  3. ESTRADIOL [Concomitant]
  4. ZETIA [Concomitant]
  5. ZYRTEC-D 12 HOUR [Concomitant]
  6. PRILOSEC [Concomitant]
  7. IBUPROFEN [Concomitant]
  8. CALCIUM W/ VIT D [Concomitant]
  9. VITAMIN D [Concomitant]
  10. MULTI-VITAMIN [Concomitant]
  11. PYRIDOXINE HCL [Concomitant]

REACTIONS (9)
  - ASTHENIA [None]
  - BLOOD PARATHYROID HORMONE DECREASED [None]
  - BLOOD POTASSIUM DECREASED [None]
  - FATIGUE [None]
  - HYPERCALCAEMIA OF MALIGNANCY [None]
  - LYMPHOEDEMA [None]
  - PAIN IN EXTREMITY [None]
  - THIRST [None]
  - WEIGHT DECREASED [None]
